FAERS Safety Report 16594619 (Version 1)
Quarter: 2019Q3

REPORT INFORMATION
  Report Type: Spontaneous
  Country: US (occurrence: US)
  Receive Date: 20190718
  Receipt Date: 20190718
  Transmission Date: 20191004
  Serious: Yes (Other)
  Sender: FDA-Public Use
  Company Number: US-HLSUS-2019-US-000630

PATIENT
  Sex: Female

DRUGS (3)
  1. CLOZARIL [Suspect]
     Active Substance: CLOZAPINE
  2. CLONAZEPAM. [Suspect]
     Active Substance: CLONAZEPAM
  3. ABILIFY [Suspect]
     Active Substance: ARIPIPRAZOLE

REACTIONS (6)
  - Hallucination, auditory [Unknown]
  - Pain [Unknown]
  - Schizophreniform disorder [Unknown]
  - Suicidal ideation [Unknown]
  - Bipolar disorder [Unknown]
  - Coeliac disease [Unknown]
